FAERS Safety Report 7368604-4 (Version None)
Quarter: 2011Q1

REPORT INFORMATION
  Report Type: 
  Country: None (occurrence: None)
  Receive Date: 20110323
  Receipt Date: 20110317
  Transmission Date: 20110831
  Serious: Yes (Death, Life-Threatening, Hospitalization)
  Sender: FDA-Public Use
  Company Number: US-BAYER-200936121GPV

PATIENT
  Sex: Female
  Weight: 44 kg

DRUGS (18)
  1. FLUOROURACIL [Suspect]
     Dosage: 3312
     Route: 041
     Dates: start: 20091005, end: 20091007
  2. IBUPROFENO [Concomitant]
     Indication: COLORECTAL CANCER METASTATIC
     Dosage: 600 MG (DAILY DOSE), ,
     Dates: start: 20090928, end: 20091012
  3. PANTOPRAZOLE SODIUM [Concomitant]
     Indication: PROPHYLAXIS
     Dosage: 40 MG (DAILY DOSE), , INTRAVENOUS
     Route: 042
     Dates: start: 20091013, end: 20091015
  4. DOPAMINE HYDROCHLORIDE [Concomitant]
     Indication: COLORECTAL CANCER STAGE IV
     Dosage: 400 MG (DAILY DOSE), , INTRAVENOUS
     Route: 042
     Dates: start: 20091014, end: 20091015
  5. DEXAMETHASONE [Concomitant]
     Indication: PREMEDICATION
     Dosage: 16 MG (DAILY DOSE), ,
     Dates: start: 20091005, end: 20091005
  6. PARACETAMOL [Concomitant]
     Indication: PAIN
     Dosage: 2 G (DAILY DOSE), ,
     Dates: start: 20090928, end: 20091012
  7. TARDYFERON [Concomitant]
     Indication: ANAEMIA
     Dosage: 256.30 MG (DAILY DOSE), ,
     Dates: start: 20090928, end: 20091012
  8. ONDANSETRON [Concomitant]
     Indication: PREMEDICATION
     Dosage: 8 MG (DAILY DOSE), ,
     Dates: start: 20091005, end: 20091005
  9. OXALIPLATIN [Suspect]
     Indication: COLORECTAL CANCER STAGE IV
     Dosage: 117.30
     Route: 042
     Dates: start: 20091005, end: 20091005
  10. OMEPRAZOLE [Concomitant]
     Indication: PROPHYLAXIS AGAINST GASTROINTESTINAL ULCER
     Dosage: 20 MG (DAILY DOSE), ,
     Dates: start: 20090928, end: 20091012
  11. DORMICUM [Concomitant]
     Indication: PAIN
     Dosage: 7.5 MG (DAILY DOSE), , INTRAVENOUS
     Route: 042
     Dates: start: 20091015, end: 20091015
  12. LEUCOVORIN CALCIUM [Suspect]
     Indication: COLORECTAL CANCER STAGE IV
     Dosage: 522.00
     Route: 042
     Dates: start: 20091005, end: 20091005
  13. FLUOROURACIL [Suspect]
     Indication: COLORECTAL CANCER STAGE IV
     Dosage: 552
     Route: 040
     Dates: start: 20091005, end: 20091005
  14. PARACETAMOL [Concomitant]
     Dosage: 3 G (DAILY DOSE), ,
     Dates: start: 20091013, end: 20091015
  15. PRIMPERAN TAB [Concomitant]
     Indication: NAUSEA
     Dosage: 30 MG (DAILY DOSE), ,
     Dates: start: 20090928, end: 20091015
  16. PERFALGAN [Concomitant]
     Indication: PAIN
     Dosage: 3 G (DAILY DOSE), , INTRAVENOUS
     Route: 042
     Dates: start: 20091013, end: 20091015
  17. SORAFENIB (RAF KINASE INHIBITOR) [Suspect]
     Indication: COLORECTAL CANCER METASTATIC
     Route: 048
     Dates: start: 20091005, end: 20091013
  18. MORPHINE HYDROCHLORIDE [Concomitant]
     Indication: PAIN
     Dosage: 30 MG (DAILY DOSE), , INTRAVENOUS
     Route: 042
     Dates: start: 20091015, end: 20091015

REACTIONS (4)
  - RENAL FAILURE [None]
  - PANCYTOPENIA [None]
  - MUCOSAL INFLAMMATION [None]
  - DIARRHOEA [None]
